FAERS Safety Report 22250562 (Version 1)
Quarter: 2023Q2

REPORT INFORMATION
  Report Type: Spontaneous
  Country: US (occurrence: None)
  Receive Date: 20230424
  Receipt Date: 20230424
  Transmission Date: 20230722
  Serious: Yes (Life-Threatening, Hospitalization, Other)
  Sender: FDA-Public Use
  Company Number: None

PATIENT
  Age: 51 Year
  Sex: Female
  Weight: 94.1 kg

DRUGS (7)
  1. CEFTRIAXONE [Suspect]
     Active Substance: CEFTRIAXONE
     Indication: Diverticulitis
     Dosage: OTHER FREQUENCY : ONCE;?
     Route: 040
     Dates: start: 20230422, end: 20230422
  2. perocet 5-325 mg tablet [Concomitant]
     Dates: start: 20230422
  3. LR [Concomitant]
     Dates: start: 20230422
  4. ciprofloxacin 400 mg IV [Concomitant]
     Dates: start: 20230421
  5. flagyl 500 mg IV [Concomitant]
     Dates: start: 20230421
  6. fentanyl 50 mcg IV [Concomitant]
     Dates: start: 20230422, end: 20230422
  7. iopamidol 370 100 mL contrast IV [Concomitant]
     Dates: start: 20230421, end: 20230421

REACTIONS (5)
  - Nausea [None]
  - Feeling abnormal [None]
  - Agonal respiration [None]
  - Erythema [None]
  - Bruxism [None]

NARRATIVE: CASE EVENT DATE: 20230422
